FAERS Safety Report 23441034 (Version 1)
Quarter: 2024Q1

REPORT INFORMATION
  Report Type: Spontaneous
  Country: DE (occurrence: DE)
  Receive Date: 20240125
  Receipt Date: 20240125
  Transmission Date: 20240410
  Serious: Yes (Hospitalization, Other)
  Sender: FDA-Public Use
  Company Number: DE-SUN PHARMACEUTICAL INDUSTRIES LTD-2024RR-428600

PATIENT
  Age: 68 Year
  Sex: Male
  Weight: 107 kg

DRUGS (19)
  1. OXALIPLATIN [Suspect]
     Active Substance: OXALIPLATIN
     Indication: Oesophageal adenocarcinoma
     Dosage: 195 MILLIGRAM, UNK
     Route: 040
  2. OXALIPLATIN [Suspect]
     Active Substance: OXALIPLATIN
     Dosage: 85 MILLIGRAM, UNK
     Route: 040
  3. OXALIPLATIN [Suspect]
     Active Substance: OXALIPLATIN
     Dosage: 190 MILLIGRAM, UNK
     Route: 040
  4. OXALIPLATIN [Suspect]
     Active Substance: OXALIPLATIN
     Dosage: 155 MILLIGRAM, UNK
     Route: 040
  5. LEUCOVORIN CALCIUM [Suspect]
     Active Substance: LEUCOVORIN CALCIUM
     Indication: Oesophageal adenocarcinoma
     Dosage: 450 MILLIGRAM
     Route: 040
  6. LEUCOVORIN CALCIUM [Suspect]
     Active Substance: LEUCOVORIN CALCIUM
     Dosage: 200 MILLIGRAM, UNK
     Route: 040
  7. LEUCOVORIN CALCIUM [Suspect]
     Active Substance: LEUCOVORIN CALCIUM
     Dosage: 350 MILLIGRAM, UNK
     Route: 040
  8. PEMBROLIZUMAB [Suspect]
     Active Substance: PEMBROLIZUMAB
     Indication: Oesophageal adenocarcinoma
     Dosage: 200 MILLIGRAM
     Route: 040
     Dates: start: 20230424, end: 20230515
  9. DOCETAXEL [Suspect]
     Active Substance: DOCETAXEL\DOCETAXEL ANHYDROUS
     Indication: Oesophageal adenocarcinoma
     Dosage: 50 MILLIGRAM, UNK
     Route: 040
     Dates: start: 20230425
  10. DOCETAXEL [Suspect]
     Active Substance: DOCETAXEL\DOCETAXEL ANHYDROUS
     Dosage: 90 MILLIGRAM, UNK
     Route: 040
  11. DOCETAXEL [Suspect]
     Active Substance: DOCETAXEL\DOCETAXEL ANHYDROUS
     Dosage: 112 MILLIGRAM, UNK
     Route: 040
  12. DOCETAXEL [Suspect]
     Active Substance: DOCETAXEL\DOCETAXEL ANHYDROUS
     Dosage: 114 MILLIGRAM
     Route: 040
  13. ONTRUZANT [Suspect]
     Active Substance: TRASTUZUMAB-DTTB
     Indication: Oesophageal adenocarcinoma
     Dosage: 8 MILLIGRAM, UNK
     Route: 040
     Dates: start: 20230424
  14. ONTRUZANT [Suspect]
     Active Substance: TRASTUZUMAB-DTTB
     Dosage: 642 MILLIGRAM
     Route: 040
  15. ONTRUZANT [Suspect]
     Active Substance: TRASTUZUMAB-DTTB
     Dosage: 896 MILLIGRAM, UNK
     Route: 040
  16. FLUOROURACIL [Suspect]
     Active Substance: FLUOROURACIL
     Indication: Oesophageal adenocarcinoma
     Dosage: 2600 MILLIGRAM, UNK
     Route: 040
     Dates: start: 20230425
  17. FLUOROURACIL [Suspect]
     Active Substance: FLUOROURACIL
     Dosage: 5850 MILLIGRAM, UNK
     Route: 040
  18. FLUOROURACIL [Suspect]
     Active Substance: FLUOROURACIL
     Dosage: 5950 MILLIGRAM, UNK
     Route: 040
  19. FLUOROURACIL [Suspect]
     Active Substance: FLUOROURACIL
     Dosage: 4700 MILLIGRAM, UNK
     Route: 040

REACTIONS (4)
  - Immune-mediated enterocolitis [Recovered/Resolved]
  - Gastric stenosis [Recovered/Resolved]
  - Diarrhoea [Recovered/Resolved]
  - Product use in unapproved indication [Unknown]

NARRATIVE: CASE EVENT DATE: 20230504
